FAERS Safety Report 20235984 (Version 1)
Quarter: 2021Q4

REPORT INFORMATION
  Report Type: Report from Study
  Country: US (occurrence: US)
  Receive Date: 20211228
  Receipt Date: 20211228
  Transmission Date: 20220304
  Serious: Yes (Hospitalization)
  Sender: FDA-Public Use
  Company Number: US-BIOGEN-2021BI01080713

PATIENT
  Sex: Female

DRUGS (1)
  1. TECFIDERA [Suspect]
     Active Substance: DIMETHYL FUMARATE
     Indication: Multiple sclerosis
     Route: 065
     Dates: start: 20190320, end: 20210707

REACTIONS (4)
  - Sepsis [Unknown]
  - Meningitis viral [Unknown]
  - Pain [Not Recovered/Not Resolved]
  - Multiple sclerosis relapse [Unknown]
